FAERS Safety Report 12089108 (Version 1)
Quarter: 2016Q1

REPORT INFORMATION
  Report Type: Spontaneous
  Country: DE (occurrence: DE)
  Receive Date: 20160218
  Receipt Date: 20160218
  Transmission Date: 20160526
  Serious: Yes (Other)
  Sender: FDA-Public Use
  Company Number: GXKR2016DE000937

PATIENT
  Sex: Male

DRUGS (1)
  1. CLINDAMYCIN 1A PHARMA [Suspect]
     Active Substance: CLINDAMYCIN HYDROCHLORIDE
     Indication: ABSCESS JAW
     Dosage: 600 MG, BID
     Route: 048
     Dates: start: 20160212

REACTIONS (1)
  - Haematuria traumatic [Recovered/Resolved]

NARRATIVE: CASE EVENT DATE: 20160212
